FAERS Safety Report 26032701 (Version 1)
Quarter: 2025Q4

REPORT INFORMATION
  Report Type: Spontaneous
  Country: US (occurrence: US)
  Receive Date: 20251112
  Receipt Date: 20251112
  Transmission Date: 20260118
  Serious: No
  Sender: AUROBINDO
  Company Number: US-AUROBINDO-AUR-APL-2025-045623

PATIENT
  Age: 70 Year
  Sex: Male
  Weight: 78.925 kg

DRUGS (2)
  1. TESTOSTERONE CYPIONATE [Suspect]
     Active Substance: TESTOSTERONE CYPIONATE
     Indication: Product used for unknown indication
     Dosage: UNK (ONCE A WEEK)
     Route: 030
     Dates: start: 202506, end: 20250904
  2. VITAMINS [Concomitant]
     Active Substance: VITAMINS
     Indication: Product used for unknown indication
     Dosage: UNK
     Route: 065

REACTIONS (2)
  - Incorrect product administration duration [Recovered/Resolved]
  - Liquid product physical issue [Recovered/Resolved]

NARRATIVE: CASE EVENT DATE: 20250904
